FAERS Safety Report 9529575 (Version 2)
Quarter: 2013Q3

REPORT INFORMATION
  Report Type: Report from Study
  Country: AU (occurrence: AU)
  Receive Date: 20130917
  Receipt Date: 20130919
  Transmission Date: 20140515
  Serious: Yes (Hospitalization)
  Sender: FDA-Public Use
  Company Number: PHHO2013AU012002

PATIENT
  Age: 57 Year
  Sex: Female

DRUGS (1)
  1. CGS 20267 [Suspect]
     Indication: BREAST CANCER
     Dosage: 2.5 MG, QD
     Dates: start: 20091013

REACTIONS (2)
  - Squamous cell carcinoma of the vulva [Recovered/Resolved]
  - Second primary malignancy [Recovered/Resolved]
